FAERS Safety Report 7153865-7 (Version None)
Quarter: 2010Q4

REPORT INFORMATION
  Report Type: 
  Country: None (occurrence: None)
  Receive Date: 20101213
  Receipt Date: 20101019
  Transmission Date: 20110411
  Serious: No
  Sender: FDA-Public Use
  Company Number: US-ABBOTT-10P-163-0679627-00

PATIENT
  Sex: Female
  Weight: 90.8 kg

DRUGS (5)
  1. MERIDIA [Suspect]
     Indication: WEIGHT CONTROL
     Dates: start: 20100101, end: 20101001
  2. FISH OIL [Concomitant]
     Indication: MEDICAL DIET
  3. FLAX SEED OIL [Concomitant]
     Indication: MEDICAL DIET
  4. VITAMIN D [Concomitant]
     Indication: MEDICAL DIET
  5. UNKNOWN BIRTH CONTROL [Concomitant]
     Indication: PRODUCT USED FOR UNKNOWN INDICATION

REACTIONS (5)
  - BLOOD PRESSURE INCREASED [None]
  - DIZZINESS [None]
  - FEELING ABNORMAL [None]
  - FEELING HOT [None]
  - PALPITATIONS [None]
